FAERS Safety Report 10867204 (Version 1)
Quarter: 2015Q1

REPORT INFORMATION
  Report Type: Spontaneous
  Country: JP (occurrence: JP)
  Receive Date: 20150225
  Receipt Date: 20150225
  Transmission Date: 20150721
  Serious: Yes (Hospitalization, Other)
  Sender: FDA-Public Use
  Company Number: PHHY2014JP150108

PATIENT
  Age: 87 Year
  Sex: Female
  Weight: 55 kg

DRUGS (3)
  1. GLIVEC [Suspect]
     Active Substance: IMATINIB MESYLATE
     Dosage: 200 MG, QD
     Route: 048
  2. GLIVEC [Suspect]
     Active Substance: IMATINIB MESYLATE
     Dosage: 300 MG, QD
     Route: 048
     Dates: end: 20141006
  3. GLIVEC [Suspect]
     Active Substance: IMATINIB MESYLATE
     Indication: GASTROINTESTINAL STROMAL TUMOUR
     Dosage: 400 MG, QD
     Route: 048
     Dates: start: 20120806, end: 201209

REACTIONS (9)
  - Haemoglobin decreased [Recovered/Resolved]
  - Condition aggravated [Unknown]
  - Renal impairment [Unknown]
  - Gastrointestinal stenosis [Unknown]
  - Gastrointestinal stromal tumour [Unknown]
  - Haematemesis [Recovered/Resolved]
  - Malignant neoplasm progression [Unknown]
  - Decreased appetite [Recovering/Resolving]
  - Oedema peripheral [Recovered/Resolved]

NARRATIVE: CASE EVENT DATE: 20120820
